FAERS Safety Report 4882227-8 (Version None)
Quarter: 2006Q1

REPORT INFORMATION
  Report Type: 
  Country: None (occurrence: None)
  Receive Date: 20060113
  Receipt Date: 20060113
  Transmission Date: 20060701
  Serious: Yes (Hospitalization)
  Sender: FDA-Public Use
  Company Number: None

PATIENT
  Sex: Female
  Weight: 50 kg

DRUGS (15)
  1. L-ASPARAGINASE (10,000U/M2/DOSE) [Suspect]
     Indication: LEUKAEMIA
     Dosage: 14,500U IM DAY 2,4,6,8,10,12, + 15
     Route: 030
     Dates: start: 20050927
  2. L-ASPARAGINASE (10,000U/M2/DOSE) [Suspect]
     Indication: LEUKAEMIA
     Dosage: 14,500U IM DAY 2,4,6,8,10,12, + 15
     Route: 030
     Dates: start: 20050929
  3. L-ASPARAGINASE (10,000U/M2/DOSE) [Suspect]
     Indication: LEUKAEMIA
     Dosage: 14,500U IM DAY 2,4,6,8,10,12, + 15
     Route: 030
     Dates: start: 20051001
  4. L-ASPARAGINASE (10,000U/M2/DOSE) [Suspect]
     Indication: LEUKAEMIA
     Dosage: 14,500U IM DAY 2,4,6,8,10,12, + 15
     Route: 030
     Dates: start: 20051003
  5. L-ASPARAGINASE (10,000U/M2/DOSE) [Suspect]
     Indication: LEUKAEMIA
     Dosage: 14,500U IM DAY 2,4,6,8,10,12, + 15
     Route: 030
     Dates: start: 20051005
  6. METHOTREXATE [Suspect]
     Indication: LEUKAEMIA
     Dosage: 12, 24, 36 MG DAY
     Dates: start: 20050926
  7. METHOTREXATE [Suspect]
     Indication: LEUKAEMIA
     Dosage: 12, 24, 36 MG DAY
     Dates: start: 20051010
  8. CYTARABINE [Suspect]
  9. HYDROCORTISONE [Suspect]
     Route: 037
  10. SENNA [Concomitant]
  11. COLACE [Concomitant]
  12. FORICONIZOLE [Concomitant]
  13. BACTRIM [Concomitant]
  14. ZOFRAN [Concomitant]
  15. PHENERGAN [Concomitant]

REACTIONS (2)
  - HEMIPARESIS [None]
  - TRANSIENT ISCHAEMIC ATTACK [None]
